FAERS Safety Report 4711084-5 (Version None)
Quarter: 2005Q3

REPORT INFORMATION
  Report Type: 
  Country: None (occurrence: None)
  Receive Date: 20050708
  Receipt Date: 20050628
  Transmission Date: 20060218
  Serious: Yes (Hospitalization, Disabling)
  Sender: FDA-Public Use
  Company Number: 2005082011

PATIENT
  Age: 41 Year
  Sex: Female
  Weight: 93 kg

DRUGS (2)
  1. GENOTROPIN [Suspect]
     Indication: HYPOPITUITARISM
     Dosage: 0.2 MG (0.2 MG, DAILY), SUBCUTANEOUS
     Route: 058
     Dates: start: 20030722, end: 20031006
  2. GENOTROPIN [Suspect]
     Indication: HYPOPITUITARISM
     Dosage: 0.2 MG (0.2 MG, DAILY), SUBCUTANEOUS
     Route: 058
     Dates: start: 20031108, end: 20040902

REACTIONS (5)
  - ABDOMINAL PAIN [None]
  - BENIGN OVARIAN TUMOUR [None]
  - HYPOAESTHESIA [None]
  - OVARIAN ADENOMA [None]
  - OVARIAN ENLARGEMENT [None]
